FAERS Safety Report 8970509 (Version 1)
Quarter: 2012Q4

REPORT INFORMATION
  Report Type: 
  Country: US (occurrence: US)
  Receive Date: 20121218
  Receipt Date: 20121218
  Transmission Date: 20130627
  Serious: No
  Sender: FDA-Public Use
  Company Number: US-GLAXOSMITHKLINE-A0979240A

PATIENT
  Age: 63 Year
  Sex: Male

DRUGS (2)
  1. NICORETTE [Suspect]
     Indication: EX-TOBACCO USER
     Route: 002
  2. NICODERM CQ [Suspect]
     Indication: EX-TOBACCO USER
     Route: 062
     Dates: start: 201101

REACTIONS (3)
  - Malaise [Recovered/Resolved]
  - Drug administration error [Unknown]
  - Product quality issue [Unknown]
